FAERS Safety Report 5391619-2 (Version None)
Quarter: 2007Q3

REPORT INFORMATION
  Report Type: 
  Country: None (occurrence: None)
  Receive Date: 20070717
  Receipt Date: 20070710
  Transmission Date: 20080115
  Serious: Yes (Death)
  Sender: FDA-Public Use
  Company Number: B0478809A

PATIENT
  Sex: 0

DRUGS (9)
  1. BUSULPHAN (FORMULATION UNKNOWN) (GENERIC) (BUSULFAN) [Suspect]
     Indication: MEDULLOBLASTOMA
     Dosage: SEE DOSAGE TEXT / ORAL
     Route: 048
  2. THIOTEPA [Suspect]
     Indication: MEDULLOBLASTOMA
     Dosage: INTRAVENOUS INFUS
  3. RADIOTHERAPY [Concomitant]
  4. HYDRATION THERAPY [Concomitant]
  5. CLONAZEPAM [Concomitant]
  6. URSODIOL [Concomitant]
  7. GRANULOCYTE COL.STIM.FACT [Concomitant]
  8. PLATELETS [Concomitant]
  9. RED BLOOD CELLS [Concomitant]

REACTIONS (1)
  - BRONCHOPULMONARY ASPERGILLOSIS [None]
